FAERS Safety Report 5746661-6 (Version None)
Quarter: 2008Q2

REPORT INFORMATION
  Report Type: 
  Country: None (occurrence: None)
  Receive Date: 20080520
  Receipt Date: 20080508
  Transmission Date: 20081010
  Serious: Yes (Hospitalization, Other)
  Sender: FDA-Public Use
  Company Number: 2008-01626

PATIENT
  Age: 67 Year
  Sex: Male
  Weight: 97 kg

DRUGS (2)
  1. VELCADE [Suspect]
     Indication: MULTIPLE MYELOMA
     Dates: end: 20070306
  2. PREGABALIN [Concomitant]

REACTIONS (3)
  - AREFLEXIA [None]
  - HYPERAESTHESIA [None]
  - PARAESTHESIA [None]
